FAERS Safety Report 4874076-1 (Version None)
Quarter: 2006Q1

REPORT INFORMATION
  Report Type: 
  Country: None (occurrence: None)
  Receive Date: 20060104
  Receipt Date: 20051220
  Transmission Date: 20060701
  Serious: Yes (Other)
  Sender: FDA-Public Use
  Company Number: 2005172065

PATIENT
  Age: 61 Year
  Sex: Female

DRUGS (1)
  1. DILANTIN [Suspect]
     Indication: GRAND MAL CONVULSION
     Dosage: 600 MG (200 MG 3 IN 1D)
     Dates: end: 19910101

REACTIONS (7)
  - CERVIX CARCINOMA [None]
  - DEMENTIA ALZHEIMER'S TYPE [None]
  - DRUG TOXICITY [None]
  - INTERVERTEBRAL DISC PROTRUSION [None]
  - SPINAL COLUMN STENOSIS [None]
  - SYSTEMIC LUPUS ERYTHEMATOSUS [None]
  - UTERINE CANCER [None]
